FAERS Safety Report 18520589 (Version 6)
Quarter: 2021Q1

REPORT INFORMATION
  Report Type: Spontaneous
  Country: JP (occurrence: JP)
  Receive Date: 20201118
  Receipt Date: 20210219
  Transmission Date: 20210419
  Serious: Yes (Hospitalization, Other)
  Sender: FDA-Public Use
  Company Number: JP-BRISTOL-MYERS SQUIBB COMPANY-BMS-2020-057301

PATIENT
  Age: 57 Year
  Sex: Female
  Weight: 37.3 kg

DRUGS (20)
  1. OPDIVO [Suspect]
     Active Substance: NIVOLUMAB
     Dosage: 240 MILLIGRAM
     Route: 041
     Dates: start: 20200608, end: 20200608
  2. SUTENT [Suspect]
     Active Substance: SUNITINIB MALATE
     Indication: METASTATIC RENAL CELL CARCINOMA
     Dosage: 25 MG, 2?WEEK?ON/1?WEEK?OFF
     Route: 065
     Dates: start: 20200811, end: 20200924
  3. LOXOPROFEN NA [Concomitant]
     Active Substance: LOXOPROFEN SODIUM
     Dosage: 60 MILLIGRAM, PRN
     Route: 048
     Dates: start: 20200529, end: 20200717
  4. AZULENE [SODIUM GUALENATE HYDRATE] [Concomitant]
     Indication: PROPHYLAXIS
     Dosage: UNK,4?6 DROPS, GARGLE (5 TIMES A DAY)
     Route: 002
     Dates: start: 20200526
  5. DRUGS FOR PEPTIC ULCER AND GASTRO?OESOPHAGEAL REFLUX DISEASE (GORD) [Concomitant]
     Active Substance: UNSPECIFIED INGREDIENT
     Indication: PRODUCT USED FOR UNKNOWN INDICATION
     Dosage: UNK
     Route: 065
  6. OPDIVO [Suspect]
     Active Substance: NIVOLUMAB
     Dosage: 240 MILLIGRAM
     Route: 041
     Dates: start: 20200615, end: 20200615
  7. ELIQUIS [Concomitant]
     Active Substance: APIXABAN
     Indication: DEEP VEIN THROMBOSIS
     Dosage: 5 MILLIGRAM, BID
     Route: 048
     Dates: start: 20200515, end: 20200628
  8. YERVOY [Suspect]
     Active Substance: IPILIMUMAB
     Dosage: 50 MILLIGRAM
     Route: 041
     Dates: start: 20200615, end: 20200615
  9. REBAMIPIDE [Concomitant]
     Active Substance: REBAMIPIDE
     Indication: PRODUCT USED FOR UNKNOWN INDICATION
     Dosage: 100 MILLIGRAM, TID
     Route: 048
     Dates: start: 20200529, end: 20200628
  10. ELIQUIS [Concomitant]
     Active Substance: APIXABAN
     Dosage: 10 MILLIGRAM, Q12H
     Route: 048
     Dates: start: 20200612, end: 20200628
  11. AMOXICILLIN TRIHYDRATE [Concomitant]
     Active Substance: AMOXICILLIN
     Indication: PROPHYLAXIS
     Dosage: 250 MILLIGRAM, TID
     Route: 048
     Dates: start: 20200526, end: 20200613
  12. YERVOY [Suspect]
     Active Substance: IPILIMUMAB
     Indication: RENAL CANCER
     Dosage: 50 MILLIGRAM
     Route: 041
     Dates: start: 20200518, end: 20200518
  13. MAGMITT [Concomitant]
     Active Substance: MAGNESIUM OXIDE
     Indication: RENAL CANCER
     Dosage: 250 MILLIGRAM, TID
     Route: 048
     Dates: start: 20200524, end: 20200628
  14. LOXOPROFEN NA [Concomitant]
     Active Substance: LOXOPROFEN SODIUM
     Indication: RENAL CANCER
     Dosage: 60 MILLIGRAM, TID
     Route: 048
     Dates: start: 20200423, end: 20200528
  15. LOXOPROFEN NA [Concomitant]
     Active Substance: LOXOPROFEN SODIUM
     Dosage: 60 MILLIGRAM, TID
     Route: 048
     Dates: start: 20200718
  16. YERVOY [Suspect]
     Active Substance: IPILIMUMAB
     Dosage: 50 MILLIGRAM
     Route: 041
     Dates: start: 20200608, end: 20200608
  17. OPDIVO [Suspect]
     Active Substance: NIVOLUMAB
     Indication: METASTATIC RENAL CELL CARCINOMA
     Dosage: 240 MILLIGRAM
     Route: 041
     Dates: start: 20200518, end: 20200518
  18. LANSOPRAZOLE. [Suspect]
     Active Substance: LANSOPRAZOLE
     Dosage: 15 MILLIGRAM, QD
     Route: 048
     Dates: start: 20200708, end: 20200713
  19. MAGMITT [Concomitant]
     Active Substance: MAGNESIUM OXIDE
     Dosage: 250 MILLIGRAM, TID
     Route: 048
     Dates: start: 20200728
  20. LANSOPRAZOLE. [Suspect]
     Active Substance: LANSOPRAZOLE
     Indication: RENAL CANCER
     Dosage: 15 MILLIGRAM, QD
     Route: 048
     Dates: start: 20200423, end: 20200628

REACTIONS (16)
  - Nausea [Recovering/Resolving]
  - Malaise [Recovering/Resolving]
  - Haemoglobin decreased [Recovering/Resolving]
  - Pyrexia [Recovered/Resolved]
  - Vomiting [Recovering/Resolving]
  - Spinal cord compression [Unknown]
  - Colitis [Recovering/Resolving]
  - Diarrhoea [Recovered/Resolved]
  - Enterococcal infection [Recovering/Resolving]
  - Cancer pain [Not Recovered/Not Resolved]
  - Malignant neoplasm progression [Unknown]
  - Metastases to bone [Unknown]
  - Colitis microscopic [Recovering/Resolving]
  - Gastroenteritis staphylococcal [Recovering/Resolving]
  - Enterocolitis bacterial [Recovering/Resolving]
  - Pancytopenia [Recovering/Resolving]

NARRATIVE: CASE EVENT DATE: 20200616
